FAERS Safety Report 17877342 (Version 1)
Quarter: 2020Q2

REPORT INFORMATION
  Report Type: Report from Study
  Country: US (occurrence: US)
  Receive Date: 20200609
  Receipt Date: 20200609
  Transmission Date: 20200714
  Serious: Yes (Other)
  Sender: FDA-Public Use
  Company Number: US-BAUSCH-BL-2020-016389

PATIENT
  Age: 78 Year
  Sex: Female

DRUGS (1)
  1. PROLENSA [Suspect]
     Active Substance: BROMFENAC SODIUM
     Indication: POSTOPERATIVE CARE
     Dosage: ONE DROP PER DAY PER RIGHT EYE ONLY
     Route: 047
     Dates: start: 201807

REACTIONS (2)
  - Retinal tear [Unknown]
  - Product use issue [Unknown]
